FAERS Safety Report 6935228-X (Version None)
Quarter: 2010Q3

REPORT INFORMATION
  Report Type: 
  Country: None (occurrence: None)
  Receive Date: 20100822
  Receipt Date: 20091026
  Transmission Date: 20110219
  Serious: No
  Sender: FDA-Public Use
  Company Number: US-ALLERGAN-0914796US

PATIENT
  Age: 63 Year
  Sex: Male

DRUGS (2)
  1. FLUOROPLEX [Suspect]
     Indication: PRODUCT USED FOR UNKNOWN INDICATION
     Dosage: UNK
     Route: 061
     Dates: start: 20091001, end: 20091018
  2. HYDROCORTISONE [Concomitant]
     Dosage: UNK

REACTIONS (2)
  - ERYTHEMA [None]
  - PARAESTHESIA [None]
